FAERS Safety Report 9470749 (Version 1)
Quarter: 2013Q3

REPORT INFORMATION
  Report Type: Spontaneous
  Country: US (occurrence: US)
  Receive Date: 20130822
  Receipt Date: 20130822
  Transmission Date: 20140515
  Serious: No
  Sender: FDA-Public Use
  Company Number: US-SANOFI-AVENTIS-2013SA063367

PATIENT
  Age: 61 Year
  Sex: Female

DRUGS (2)
  1. ZALTRAP [Suspect]
  2. OTHER CHEMOTHERAPEUTICS (OTHER CHEMOTHERAPEUTICS) [Suspect]

REACTIONS (3)
  - Blindness [Unknown]
  - Platelet count decreased [Unknown]
  - Fatigue [Unknown]
